FAERS Safety Report 6521629-0 (Version None)
Quarter: 2009Q4

REPORT INFORMATION
  Report Type: 
  Country: None (occurrence: None)
  Receive Date: 20091230
  Receipt Date: 20091218
  Transmission Date: 20100525
  Serious: Yes (Hospitalization)
  Sender: FDA-Public Use
  Company Number: PHHY2009AT56968

PATIENT
  Sex: Female

DRUGS (1)
  1. TEGRETOL [Suspect]
     Dosage: 200 MG, UNK

REACTIONS (3)
  - BLOOD COUNT ABNORMAL [None]
  - CONVULSION [None]
  - MEDICAL DEVICE IMPLANTATION [None]
